FAERS Safety Report 17419400 (Version 1)
Quarter: 2020Q1

REPORT INFORMATION
  Report Type: Spontaneous
  Country: US (occurrence: US)
  Receive Date: 20200214
  Receipt Date: 20200214
  Transmission Date: 20200409
  Serious: No
  Sender: FDA-Public Use
  Company Number: US-CELGENEUS-USA-20200202845

PATIENT
  Sex: Male

DRUGS (2)
  1. OTEZLA [Suspect]
     Active Substance: APREMILAST
     Indication: PSORIASIS
     Dosage: STARTER PACK
     Route: 048
  2. OTEZLA [Suspect]
     Active Substance: APREMILAST
     Dosage: 60 MILLIGRAM
     Route: 048
     Dates: end: 2020

REACTIONS (7)
  - Pain [Unknown]
  - Diarrhoea [Unknown]
  - Hyperaesthesia [Unknown]
  - Abdominal discomfort [Unknown]
  - Headache [Unknown]
  - Dry skin [Unknown]
  - Dyspepsia [Unknown]
